FAERS Safety Report 4829382-3 (Version None)
Quarter: 2005Q4

REPORT INFORMATION
  Report Type: 
  Country: None (occurrence: None)
  Receive Date: 20051028
  Receipt Date: 20050309
  Transmission Date: 20060501
  Serious: No
  Sender: FDA-Public Use
  Company Number: US119925

PATIENT
  Age: 53 Year
  Sex: Male
  Weight: 92.2 kg

DRUGS (8)
  1. SENSIPAR [Suspect]
     Indication: HYPERPARATHYROIDISM SECONDARY
     Dosage: 30 MG, 1 IN 1 DAY, PO
     Route: 048
     Dates: start: 20041025
  2. HYDROXYZINE HYDROCHLORIDE [Concomitant]
  3. CLONIDINE [Concomitant]
  4. ATORVASTATIN CALCIUM [Concomitant]
  5. DIATX [Concomitant]
  6. SEVELAMER HCL [Concomitant]
  7. VERAPAMIL [Concomitant]
  8. ALPRAZOLAM [Concomitant]

REACTIONS (3)
  - ARTHRALGIA [None]
  - JOINT SWELLING [None]
  - OEDEMA PERIPHERAL [None]
